FAERS Safety Report 22620579 (Version 1)
Quarter: 2023Q2

REPORT INFORMATION
  Report Type: Spontaneous
  Country: None (occurrence: US)
  Receive Date: 20230620
  Receipt Date: 20230620
  Transmission Date: 20230722
  Serious: No
  Sender: FDA-Public Use
  Company Number: US-ITALFARMACO SPA-2142912

PATIENT
  Age: 49 Year
  Sex: Male

DRUGS (7)
  1. TIGLUTIK [Suspect]
     Active Substance: RILUZOLE
     Indication: Amyotrophic lateral sclerosis
     Route: 048
     Dates: start: 20220129
  2. SERTRALINE [Concomitant]
     Active Substance: SERTRALINE HYDROCHLORIDE
  3. BACLOFEN [Concomitant]
     Active Substance: BACLOFEN
  4. TELMISARTAN [Concomitant]
     Active Substance: TELMISARTAN
  5. ASPIRIN [Concomitant]
     Active Substance: ASPIRIN
  6. SIROLIMUS [Concomitant]
     Active Substance: SIROLIMUS
  7. IVERMECTIN [Concomitant]
     Active Substance: IVERMECTIN

REACTIONS (1)
  - Liver function test increased [Unknown]
